FAERS Safety Report 24348782 (Version 1)
Quarter: 2024Q3

REPORT INFORMATION
  Report Type: Spontaneous
  Country: GB (occurrence: GB)
  Receive Date: 20240923
  Receipt Date: 20240923
  Transmission Date: 20241017
  Serious: Yes (Other)
  Sender: SANDOZ
  Company Number: None

PATIENT
  Age: 70 Year
  Sex: Male
  Weight: 119 kg

DRUGS (6)
  1. EZETIMIBE [Suspect]
     Active Substance: EZETIMIBE
     Indication: Ill-defined disorder
     Dosage: UNK
     Route: 065
     Dates: start: 20240919
  2. ALLOPURINOL [Concomitant]
     Active Substance: ALLOPURINOL
     Indication: Ill-defined disorder
     Dosage: UNK, QD, TAKE ONE DAILY (TO PREVENT GOUT)
     Route: 065
     Dates: start: 20240521
  3. AMLODIPINE [Concomitant]
     Active Substance: AMLODIPINE BESYLATE
     Indication: Ill-defined disorder
     Dosage: UNK, QD, TAKE ONE DAILY
     Route: 065
     Dates: start: 20230725
  4. EZETIMIBE [Concomitant]
     Active Substance: EZETIMIBE
     Indication: Ill-defined disorder
     Dosage: UNK, QD, TAKE ONE DAILY
     Route: 065
     Dates: start: 20240708, end: 20240919
  5. OMEPRAZOLE [Concomitant]
     Active Substance: OMEPRAZOLE
     Indication: Ill-defined disorder
     Dosage: UNK, QD, TAKE ONE DAILY, TO PROTECT STOMACH LINING
     Route: 065
     Dates: start: 20220211
  6. ROSUVASTATIN [Concomitant]
     Active Substance: ROSUVASTATIN\ROSUVASTATIN CALCIUM
     Indication: Ill-defined disorder
     Dosage: UNK, QD, TAKE ONE DAILY
     Route: 065
     Dates: start: 20240425, end: 20240708

REACTIONS (1)
  - Myalgia [Recovered/Resolved]

NARRATIVE: CASE EVENT DATE: 20240919
